FAERS Safety Report 24152254 (Version 11)
Quarter: 2024Q4

REPORT INFORMATION
  Report Type: Spontaneous
  Country: US (occurrence: US)
  Receive Date: 20240730
  Receipt Date: 20241125
  Transmission Date: 20250115
  Serious: Yes (Other)
  Sender: PFIZER
  Company Number: US-PFIZER INC-PV202400080874

PATIENT
  Age: 70 Year
  Sex: Female
  Weight: 104.33 kg

DRUGS (9)
  1. TUKYSA [Suspect]
     Active Substance: TUCATINIB
     Indication: Breast cancer metastatic
     Dosage: 450 MG, DAILY (TWO TABS OF 150 MG IN THE MORNING AND 1 TAB IN THE EVENING)
     Route: 048
     Dates: start: 20230228
  2. TUKYSA [Suspect]
     Active Substance: TUCATINIB
     Dosage: UNK, 2X/DAY
     Route: 048
     Dates: start: 202305
  3. TUKYSA [Suspect]
     Active Substance: TUCATINIB
     Dosage: UNK
  4. TRASTUZUMAB [Suspect]
     Active Substance: TRASTUZUMAB
     Indication: Breast cancer metastatic
     Dosage: UNK
     Dates: end: 20240218
  5. CAPECITABINE [Concomitant]
     Active Substance: CAPECITABINE
     Indication: Breast cancer metastatic
     Dosage: UNK
  6. XELODA [Concomitant]
     Active Substance: CAPECITABINE
     Indication: Breast cancer metastatic
     Dosage: UNK
  7. ANASTROZOLE [Concomitant]
     Active Substance: ANASTROZOLE
     Indication: Breast cancer metastatic
     Dosage: UNK
  8. ARIMIDEX [Concomitant]
     Active Substance: ANASTROZOLE
     Indication: Breast cancer metastatic
     Dosage: UNK
  9. IRON [Concomitant]
     Active Substance: IRON
     Dosage: UNK
     Dates: start: 202407

REACTIONS (5)
  - Cardiomyopathy [Unknown]
  - Weight increased [Unknown]
  - Hepatic enzyme increased [Unknown]
  - Ageusia [Recovered/Resolved]
  - Palmar-plantar erythrodysaesthesia syndrome [Unknown]

NARRATIVE: CASE EVENT DATE: 20230101
